FAERS Safety Report 17501225 (Version 2)
Quarter: 2020Q1

REPORT INFORMATION
  Report Type: Spontaneous
  Country: DE (occurrence: DE)
  Receive Date: 20200305
  Receipt Date: 20200310
  Transmission Date: 20200409
  Serious: Yes (Hospitalization)
  Sender: FDA-Public Use
  Company Number: DE-PFIZER INC-2020095116

PATIENT
  Sex: Male
  Weight: 3 kg

DRUGS (1)
  1. CYTOTEC [Suspect]
     Active Substance: MISOPROSTOL
     Indication: LABOUR INDUCTION
     Dosage: 1/4 TABLET - 4 HOURS LATER 1/2
     Route: 064
     Dates: start: 20190126, end: 20190126

REACTIONS (3)
  - Foetal exposure during delivery [Recovering/Resolving]
  - Neonatal hypoxia [Recovering/Resolving]
  - Apgar score low [Recovering/Resolving]

NARRATIVE: CASE EVENT DATE: 20190127
